FAERS Safety Report 21474935 (Version 1)
Quarter: 2022Q4

REPORT INFORMATION
  Report Type: Report from Study
  Country: CA (occurrence: CA)
  Receive Date: 20221019
  Receipt Date: 20221019
  Transmission Date: 20230112
  Serious: Yes (Other)
  Sender: FDA-Public Use
  Company Number: CA-ABBVIE-4164782

PATIENT
  Sex: Female

DRUGS (1)
  1. RINVOQ [Suspect]
     Active Substance: UPADACITINIB
     Indication: Psoriatic arthropathy
     Route: 048
     Dates: start: 20210812

REACTIONS (4)
  - Osteonecrosis [Unknown]
  - Drug effect less than expected [Unknown]
  - Musculoskeletal stiffness [Unknown]
  - Psoriatic arthropathy [Not Recovered/Not Resolved]
